FAERS Safety Report 14906797 (Version 3)
Quarter: 2018Q3

REPORT INFORMATION
  Report Type: Report from Study
  Country: US (occurrence: US)
  Receive Date: 20180517
  Receipt Date: 20180731
  Transmission Date: 20181010
  Serious: No
  Sender: FDA-Public Use
  Company Number: US-UNITED THERAPEUTICS-UNT-2018-006743

PATIENT
  Sex: Male

DRUGS (2)
  1. TREPROSTINIL SODIUM (SQ) [Suspect]
     Active Substance: TREPROSTINIL SODIUM
     Indication: PULMONARY ARTERIAL HYPERTENSION
     Dosage: 0.012 ?G/KG, CONTINUING
     Route: 058
     Dates: start: 20180419
  2. TREPROSTINIL SODIUM (SQ) [Suspect]
     Active Substance: TREPROSTINIL SODIUM
     Dosage: 0.024 ?G/KG, CONTINUING
     Route: 058

REACTIONS (2)
  - Pain in extremity [Recovering/Resolving]
  - Headache [Unknown]
